FAERS Safety Report 6414531-6 (Version None)
Quarter: 2009Q4

REPORT INFORMATION
  Report Type: 
  Country: None (occurrence: None)
  Receive Date: 20091026
  Receipt Date: 20091019
  Transmission Date: 20100525
  Serious: Yes (Hospitalization, Other)
  Sender: FDA-Public Use
  Company Number: US-AVENTIS-200919394US

PATIENT
  Sex: Male

DRUGS (15)
  1. LANTUS [Suspect]
     Route: 058
     Dates: end: 20090101
  2. LANTUS [Suspect]
     Route: 058
     Dates: start: 20090101
  3. HUMALOG [Suspect]
     Dosage: DOSE: PER SLIDING SCALE
  4. ADVAIR DISKUS 100/50 [Concomitant]
     Dosage: DOSE: UNK
  5. SPIRIVA [Concomitant]
     Dosage: DOSE: UNK
  6. MUCINEX [Concomitant]
     Dosage: DOSE: UNK
  7. PRILOSEC [Concomitant]
     Dosage: DOSE: UNK
  8. TRAMADOL HCL [Concomitant]
     Dosage: DOSE: UNK
  9. FUROSEMIDE [Concomitant]
     Dosage: DOSE: UNK
  10. AMIODARONE HCL [Concomitant]
     Dosage: DOSE: UNK
  11. XANAX [Concomitant]
     Dosage: DOSE: UNK
  12. STOOL SOFTENER [Concomitant]
     Dosage: DOSE: UNK
  13. ZOLPIDEM [Concomitant]
     Dosage: DOSE: UNK
  14. WARFARIN SODIUM [Concomitant]
     Dosage: DOSE: UNK
  15. FLOMAX [Concomitant]
     Dosage: DOSE: UNK

REACTIONS (4)
  - BLOOD GLUCOSE INCREASED [None]
  - CARDIAC FAILURE CONGESTIVE [None]
  - CARDIAC PACEMAKER INSERTION [None]
  - MEDICATION ERROR [None]
